FAERS Safety Report 5704544-1 (Version None)
Quarter: 2008Q2

REPORT INFORMATION
  Report Type: 
  Country: None (occurrence: None)
  Receive Date: 20080411
  Receipt Date: 20080411
  Transmission Date: 20081010
  Serious: Yes (Other)
  Sender: FDA-Public Use
  Company Number: None

PATIENT
  Age: 62 Year
  Sex: Male
  Weight: 80.7403 kg

DRUGS (1)
  1. VERAMYST [Suspect]
     Indication: RHINITIS ALLERGIC
     Dosage: 2 SPRAYS PER NOSTRIL DAILY NASAL
     Route: 045
     Dates: start: 20080313, end: 20080408

REACTIONS (2)
  - NASAL SEPTUM DISORDER [None]
  - RHINALGIA [None]
